FAERS Safety Report 7725627-0 (Version None)
Quarter: 2011Q3

REPORT INFORMATION
  Report Type: 
  Country: None (occurrence: None)
  Receive Date: 20110902
  Receipt Date: 20110823
  Transmission Date: 20111222
  Serious: Yes (Other)
  Sender: FDA-Public Use
  Company Number: US-US-EMD SERONO, INC.-7079322

PATIENT
  Sex: Female

DRUGS (1)
  1. REBIF [Suspect]
     Indication: MULTIPLE SCLEROSIS
     Route: 058
     Dates: start: 20060206

REACTIONS (7)
  - CEREBROVASCULAR ACCIDENT [None]
  - THYROID DISORDER [None]
  - HEADACHE [None]
  - INJECTION SITE PAIN [None]
  - INJECTION SITE ERYTHEMA [None]
  - PRURITUS [None]
  - DIABETES MELLITUS [None]
